FAERS Safety Report 5450541-3 (Version None)
Quarter: 2007Q3

REPORT INFORMATION
  Report Type: 
  Country: None (occurrence: None)
  Receive Date: 20070910
  Receipt Date: 20070829
  Transmission Date: 20080115
  Serious: Yes (Other)
  Sender: FDA-Public Use
  Company Number: 237296K07USA

PATIENT
  Age: 51 Year
  Sex: Female
  Weight: 58.9676 kg

DRUGS (2)
  1. REBIF [Suspect]
     Indication: MULTIPLE SCLEROSIS
     Dosage: 44 MCG, 3 IN WEEKS, SUBCUTANEOUS, 44 MCG, ONCE, SUBCUTANEOUS
     Route: 058
     Dates: start: 20040101, end: 20060201
  2. REBIF [Suspect]
     Indication: MULTIPLE SCLEROSIS
     Dosage: 44 MCG, 3 IN WEEKS, SUBCUTANEOUS, 44 MCG, ONCE, SUBCUTANEOUS
     Route: 058
     Dates: start: 20060301, end: 20060301

REACTIONS (3)
  - BREAST CANCER FEMALE [None]
  - PAIN [None]
  - PRURITUS GENERALISED [None]
